FAERS Safety Report 14696098 (Version 1)
Quarter: 2018Q1

REPORT INFORMATION
  Report Type: Report from Study
  Country: US (occurrence: US)
  Receive Date: 20180329
  Receipt Date: 20180329
  Transmission Date: 20180509
  Serious: Yes (Hospitalization, Other)
  Sender: FDA-Public Use
  Company Number: US-EXELIXIS-CABO-18011973

PATIENT
  Age: 50 Year
  Sex: Male

DRUGS (5)
  1. CABOMETYX [Suspect]
     Active Substance: CABOZANTINIB S-MALATE
     Dosage: 30 MG, QD
     Route: 048
     Dates: start: 20180319
  2. AMLODIPINE [Concomitant]
     Active Substance: AMLODIPINE BESYLATE
  3. CABOMETYX [Suspect]
     Active Substance: CABOZANTINIB S-MALATE
     Indication: RENAL CANCER
     Dosage: 60 MG, QD
     Route: 048
     Dates: start: 20171209, end: 20180316
  4. GABAPENTIN. [Concomitant]
     Active Substance: GABAPENTIN
  5. HYDROMORPHONE [Concomitant]
     Active Substance: HYDROMORPHONE

REACTIONS (18)
  - Nightmare [Unknown]
  - Seizure [Unknown]
  - Skin disorder [Unknown]
  - Decreased appetite [Not Recovered/Not Resolved]
  - Constipation [Unknown]
  - Skin ulcer [Unknown]
  - Malaise [Unknown]
  - Eating disorder [Unknown]
  - Pain [Unknown]
  - Cerebrovascular accident [Unknown]
  - Skin discolouration [Unknown]
  - Pruritus [Unknown]
  - Fatigue [Not Recovered/Not Resolved]
  - Depression [Unknown]
  - Hypertension [Unknown]
  - Weight decreased [Unknown]
  - Hallucination [Unknown]
  - Sleep disorder [Unknown]

NARRATIVE: CASE EVENT DATE: 20180316
